FAERS Safety Report 24934126 (Version 1)
Quarter: 2025Q1

REPORT INFORMATION
  Report Type: Report from Study
  Country: US (occurrence: US)
  Receive Date: 20250206
  Receipt Date: 20250206
  Transmission Date: 20250409
  Serious: Yes (Hospitalization)
  Sender: EXELIXIS
  Company Number: US-EXELIXIS-CABO-24078625

PATIENT
  Sex: Male
  Weight: 62.585 kg

DRUGS (1)
  1. CABOMETYX [Suspect]
     Active Substance: CABOZANTINIB S-MALATE
     Indication: Hepatocellular carcinoma
     Dosage: 20 MG, QD
     Route: 048
     Dates: start: 20240518

REACTIONS (3)
  - Dehydration [Not Recovered/Not Resolved]
  - Adverse event [Not Recovered/Not Resolved]
  - Renal impairment [Not Recovered/Not Resolved]
